FAERS Safety Report 5418741-6 (Version None)
Quarter: 2007Q3

REPORT INFORMATION
  Report Type: 
  Country: None (occurrence: None)
  Receive Date: 20070817
  Receipt Date: 20070807
  Transmission Date: 20080115
  Serious: Yes (Hospitalization, Other)
  Sender: FDA-Public Use
  Company Number: US-PFIZER INC-2007053104

PATIENT
  Sex: Male

DRUGS (9)
  1. ZYVOX [Suspect]
     Route: 048
  2. BACTRIM [Suspect]
  3. LEVOFLOXACIN [Concomitant]
  4. ACYCLOVIR [Concomitant]
  5. VORICONAZOLE [Concomitant]
  6. CASPOFUNGIN [Concomitant]
  7. CEFTAZIDIME [Concomitant]
  8. TOBRAMYCIN [Concomitant]
  9. VANCOMYCIN [Concomitant]

REACTIONS (3)
  - HYPOTENSION [None]
  - LACTIC ACIDOSIS [None]
  - PYREXIA [None]
